FAERS Safety Report 4969718-6 (Version None)
Quarter: 2006Q2

REPORT INFORMATION
  Report Type: 
  Country: None (occurrence: None)
  Receive Date: 20060411
  Receipt Date: 20060301
  Transmission Date: 20061013
  Serious: Yes (Hospitalization)
  Sender: FDA-Public Use
  Company Number: CA-MERCK-0603CAN00016

PATIENT
  Age: 55 Year
  Sex: Female
  Weight: 49 kg

DRUGS (4)
  1. SINGULAIR [Suspect]
     Indication: DYSPNOEA
     Route: 048
     Dates: end: 20060301
  2. SINGULAIR [Suspect]
     Indication: LUNG NEOPLASM MALIGNANT
     Route: 048
     Dates: end: 20060301
  3. AMOXICILLIN [Concomitant]
     Indication: INFECTION
     Route: 065
  4. CLARITHROMYCIN [Concomitant]
     Indication: INFECTION
     Route: 065

REACTIONS (3)
  - DRUG INEFFECTIVE [None]
  - DYSPHASIA [None]
  - NECK PAIN [None]
